FAERS Safety Report 19990055 (Version 2)
Quarter: 2021Q4

REPORT INFORMATION
  Report Type: Spontaneous
  Country: US (occurrence: US)
  Receive Date: 20211025
  Receipt Date: 20211027
  Transmission Date: 20220303
  Serious: No
  Sender: FDA-Public Use
  Company Number: US-ELI_LILLY_AND_COMPANY-US202110009549

PATIENT
  Age: 59 Year
  Sex: Female

DRUGS (5)
  1. REYVOW [Suspect]
     Active Substance: LASMIDITAN
     Indication: Migraine
     Dosage: 50 MG, UNKNOWN (AT NIGHT)
     Route: 065
     Dates: start: 2020
  2. NURTEC ODT [Concomitant]
     Active Substance: RIMEGEPANT SULFATE
     Indication: Migraine
  3. TYLENOL [Concomitant]
     Active Substance: ACETAMINOPHEN
     Indication: Migraine
  4. COVID-19 VACCINE [Concomitant]
     Indication: Product used for unknown indication
  5. UBRELVY [Concomitant]
     Active Substance: UBROGEPANT
     Indication: Migraine

REACTIONS (3)
  - Chills [Unknown]
  - Tremor [Unknown]
  - Somnolence [Unknown]

NARRATIVE: CASE EVENT DATE: 20210301
